FAERS Safety Report 6837485-7 (Version None)
Quarter: 2010Q3

REPORT INFORMATION
  Report Type: 
  Country: None (occurrence: None)
  Receive Date: 20100713
  Receipt Date: 20070515
  Transmission Date: 20110219
  Serious: No
  Sender: FDA-Public Use
  Company Number: US-PFIZER INC-2007040053

PATIENT
  Sex: Female
  Weight: 51.7 kg

DRUGS (7)
  1. CHANTIX [Suspect]
     Indication: SMOKING CESSATION THERAPY
     Dates: start: 20070506
  2. LEVOTHYROXINE SODIUM [Concomitant]
  3. GLICLAZIDE [Concomitant]
  4. SERTRALINE HCL [Concomitant]
  5. LIPITOR [Concomitant]
  6. ACETYLSALICYLIC ACID [Concomitant]
  7. CALCIUM [Concomitant]

REACTIONS (5)
  - ASTHENIA [None]
  - GASTRIC DISORDER [None]
  - NAUSEA [None]
  - UNEVALUABLE EVENT [None]
  - VOMITING [None]
